FAERS Safety Report 13109798 (Version 1)
Quarter: 2017Q1

REPORT INFORMATION
  Report Type: Spontaneous
  Country: US (occurrence: US)
  Receive Date: 20170112
  Receipt Date: 20170112
  Transmission Date: 20170428
  Serious: No
  Sender: FDA-Public Use
  Company Number: US-PFIZER INC-2017013625

PATIENT
  Age: 58 Year
  Sex: Female
  Weight: 70.31 kg

DRUGS (1)
  1. LYRICA [Suspect]
     Active Substance: PREGABALIN
     Indication: FIBROMYALGIA
     Dosage: 150MG THREE TIMES A DAY
     Route: 048

REACTIONS (7)
  - Burning sensation [Unknown]
  - Fibromyalgia [Not Recovered/Not Resolved]
  - Amnesia [Unknown]
  - Off label use [Unknown]
  - Condition aggravated [Not Recovered/Not Resolved]
  - Neuralgia [Unknown]
  - Hypokinesia [Unknown]

NARRATIVE: CASE EVENT DATE: 20170111
